FAERS Safety Report 5761698-9 (Version None)
Quarter: 2008Q2

REPORT INFORMATION
  Report Type: 
  Country: None (occurrence: None)
  Receive Date: 20080602
  Receipt Date: 20080522
  Transmission Date: 20081010
  Serious: No
  Sender: FDA-Public Use
  Company Number: 20085087

PATIENT
  Sex: Male

DRUGS (1)
  1. LIORESAL [Suspect]
     Indication: MUSCLE SPASTICITY
     Dosage: 160.87 MCG, DAILY, INTRATHECAL
     Route: 039

REACTIONS (5)
  - CATHETER RELATED INFECTION [None]
  - INTRACRANIAL HYPOTENSION [None]
  - MENINGITIS [None]
  - NAUSEA [None]
  - WITHDRAWAL SYNDROME [None]
